FAERS Safety Report 4378637-8 (Version None)
Quarter: 2004Q2

REPORT INFORMATION
  Report Type: 
  Country: None (occurrence: None)
  Receive Date: 20040609
  Receipt Date: 20040602
  Transmission Date: 20050107
  Serious: Yes (Hospitalization, Other)
  Sender: FDA-Public Use
  Company Number: DEWYE517719JAN04

PATIENT
  Age: 66 Year
  Sex: Male

DRUGS (11)
  1. RAPAMUNE [Suspect]
     Indication: PROPHYLAXIS AGAINST TRANSPLANT REJECTION
     Dosage: 2-4 MG; 10 MG
     Route: 048
     Dates: start: 20031030, end: 20031030
  2. RAPAMUNE [Suspect]
     Indication: PROPHYLAXIS AGAINST TRANSPLANT REJECTION
     Dosage: 2-4 MG; 10 MG
     Route: 048
     Dates: start: 20031031, end: 20040114
  3. CELLCEPT [Concomitant]
  4. URBASON (METHYLPREDISOLONE) [Concomitant]
  5. SANDIMMUNE [Concomitant]
  6. METOPROLOL (METOPROLOL) [Concomitant]
  7. NORVASC [Concomitant]
  8. LASIX [Concomitant]
  9. ACETYLSALICYLIC ACID SRT [Concomitant]
  10. ISMO - SLOW RELEASE (ISOSORBIDE MONONITRATE) [Concomitant]
  11. ALLOPURINOL [Concomitant]

REACTIONS (4)
  - ALVEOLITIS FIBROSING [None]
  - BLOOD CHOLESTEROL INCREASED [None]
  - HAEMOGLOBIN DECREASED [None]
  - PNEUMONITIS [None]
